FAERS Safety Report 15747759 (Version 2)
Quarter: 2019Q1

REPORT INFORMATION
  Report Type: Report from Study
  Country: US (occurrence: US)
  Receive Date: 20181221
  Receipt Date: 20190104
  Transmission Date: 20190417
  Serious: Yes (Hospitalization, Other)
  Sender: FDA-Public Use
  Company Number: US-JNJFOC-20171122715

PATIENT
  Age: 88 Year
  Sex: Female
  Weight: 61.1 kg

DRUGS (25)
  1. IMBRUVICA [Suspect]
     Active Substance: IBRUTINIB
     Indication: B-CELL SMALL LYMPHOCYTIC LYMPHOMA
     Dosage: 280 MG, QD
     Route: 048
     Dates: start: 20171104, end: 2017
  2. GENISTEIN [Concomitant]
     Active Substance: GENISTEIN
  3. IMBRUVICA [Suspect]
     Active Substance: IBRUTINIB
     Indication: B-CELL SMALL LYMPHOCYTIC LYMPHOMA
     Dosage: 280 MG, QD
     Route: 048
     Dates: start: 20171103, end: 20171208
  4. FLUTICASONE PROPIONATE. [Concomitant]
     Active Substance: FLUTICASONE PROPIONATE
  5. BECLOMETHASONE DIPROPIONATE [Concomitant]
     Active Substance: BECLOMETHASONE DIPROPIONATE
  6. ALAVERT ALLERGY [Concomitant]
     Active Substance: LORATADINE
     Route: 048
  7. IMBRUVICA [Suspect]
     Active Substance: IBRUTINIB
     Indication: MARGINAL ZONE LYMPHOMA
     Dosage: 280 MG, QD
     Route: 048
     Dates: start: 20171103, end: 20171208
  8. IMBRUVICA [Suspect]
     Active Substance: IBRUTINIB
     Indication: MARGINAL ZONE LYMPHOMA
     Dosage: 280 MG, QD
     Route: 048
     Dates: start: 20171104, end: 2017
  9. CRANBERRY. [Concomitant]
     Active Substance: CRANBERRY
  10. CLARITIN [Concomitant]
     Active Substance: LORATADINE
     Route: 048
  11. ESCITALOPRAM OXALATE. [Concomitant]
     Active Substance: ESCITALOPRAM OXALATE
  12. LEXAPRO [Concomitant]
     Active Substance: ESCITALOPRAM OXALATE
     Route: 048
  13. QVAR [Concomitant]
     Active Substance: BECLOMETHASONE DIPROPIONATE
     Dosage: INHALE 1-2 PUFFS , 2 TIMES A DAYAFTER BREAKFAST AND DINNER
  14. ASPIRIN. [Concomitant]
     Active Substance: ASPIRIN
  15. CINCHOCAINE [Concomitant]
     Active Substance: DIBUCAINE
  16. MAGNESIUM OXIDE. [Concomitant]
     Active Substance: MAGNESIUM OXIDE
  17. MYRBETRIQ [Concomitant]
     Active Substance: MIRABEGRON
     Route: 048
  18. LORATADINE. [Concomitant]
     Active Substance: LORATADINE
  19. TOPROL XL [Concomitant]
     Active Substance: METOPROLOL SUCCINATE
     Route: 048
  20. ECOTRIN [Concomitant]
     Active Substance: ASPIRIN
     Route: 048
  21. CRANBERRY. [Concomitant]
     Active Substance: CRANBERRY
     Route: 048
  22. IMBRUVICA [Suspect]
     Active Substance: IBRUTINIB
     Indication: B-CELL SMALL LYMPHOCYTIC LYMPHOMA
     Route: 048
  23. IMBRUVICA [Suspect]
     Active Substance: IBRUTINIB
     Indication: MARGINAL ZONE LYMPHOMA
     Route: 048
  24. KLOR-CON M10 [Concomitant]
     Active Substance: POTASSIUM CHLORIDE
     Route: 048
  25. COLACE [Concomitant]
     Active Substance: DOCUSATE SODIUM
     Indication: CONSTIPATION

REACTIONS (21)
  - Chronic left ventricular failure [Not Recovered/Not Resolved]
  - Bladder prolapse [Recovering/Resolving]
  - Epistaxis [Not Recovered/Not Resolved]
  - Diarrhoea infectious [Unknown]
  - Hyperglobulinaemia [Unknown]
  - Anaemia [Unknown]
  - Atrial tachycardia [Recovered/Resolved]
  - Neutropenia [Unknown]
  - Pneumonia staphylococcal [Recovered/Resolved with Sequelae]
  - Depression [Unknown]
  - Cystitis [Unknown]
  - Cor pulmonale [Recovered/Resolved with Sequelae]
  - Chronic obstructive pulmonary disease [Unknown]
  - Chronic kidney disease [Recovered/Resolved]
  - Product use issue [Unknown]
  - Gastrooesophageal reflux disease [Unknown]
  - Malignant pleural effusion [Recovering/Resolving]
  - Off label use [Unknown]
  - Hypertension [Unknown]
  - Insomnia [Unknown]
  - Pleural effusion [Not Recovered/Not Resolved]

NARRATIVE: CASE EVENT DATE: 201711
